FAERS Safety Report 12258032 (Version 1)
Quarter: 2016Q2

REPORT INFORMATION
  Report Type: Spontaneous
  Country: US (occurrence: US)
  Receive Date: 20160412
  Receipt Date: 20160412
  Transmission Date: 20160815
  Serious: No
  Sender: FDA-Public Use
  Company Number: US-TEVA-649865USA

PATIENT
  Age: 13 Year
  Sex: Male
  Weight: 49.94 kg

DRUGS (5)
  1. SYNTHROID [Concomitant]
     Active Substance: LEVOTHYROXINE SODIUM
  2. FAMOTIDINE. [Concomitant]
     Active Substance: FAMOTIDINE
  3. HYDROCORTISONE. [Concomitant]
     Active Substance: HYDROCORTISONE
  4. DECADRON [Concomitant]
     Active Substance: DEXAMETHASONE
  5. PROVIGIL [Suspect]
     Active Substance: MODAFINIL
     Indication: DELAYED RECOVERY FROM ANAESTHESIA
     Dates: start: 20160311, end: 20160317

REACTIONS (6)
  - Product use issue [Unknown]
  - Apathy [Recovered/Resolved]
  - Anger [Recovered/Resolved]
  - Tardive dyskinesia [Not Recovered/Not Resolved]
  - Tremor [Not Recovered/Not Resolved]
  - Hyporesponsive to stimuli [Not Recovered/Not Resolved]

NARRATIVE: CASE EVENT DATE: 20160316
